FAERS Safety Report 14015023 (Version 2)
Quarter: 2017Q4

REPORT INFORMATION
  Report Type: Report from Study
  Country: AR (occurrence: AR)
  Receive Date: 20170927
  Receipt Date: 20171010
  Transmission Date: 20180321
  Serious: Yes (Other)
  Sender: FDA-Public Use
  Company Number: PHHY2017AR141409

PATIENT
  Sex: Male

DRUGS (2)
  1. FILTEN [Concomitant]
     Indication: PRODUCT USED FOR UNKNOWN INDICATION
     Route: 065
  2. DIOVAN [Suspect]
     Active Substance: VALSARTAN
     Indication: HYPERTENSION
     Dosage: 1 DF (160, UNITS NOT PROVIDED), QD
     Route: 065

REACTIONS (2)
  - Wrong technique in product usage process [Recovering/Resolving]
  - Glaucoma [Recovering/Resolving]
